FAERS Safety Report 15241709 (Version 1)
Quarter: 2018Q3

REPORT INFORMATION
  Report Type: Spontaneous
  Country: US (occurrence: US)
  Receive Date: 20180712
  Receipt Date: 20180712
  Transmission Date: 20181010
  Serious: No
  Sender: FDA-Public Use
  Company Number: None

PATIENT
  Age: 57 Year
  Sex: Female
  Weight: 59.85 kg

DRUGS (1)
  1. AIMOVIG [Suspect]
     Active Substance: ERENUMAB-AOOE
     Indication: MIGRAINE
     Dates: start: 20180609

REACTIONS (4)
  - Middle insomnia [None]
  - Constipation [None]
  - Hypoaesthesia [None]
  - Raynaud^s phenomenon [None]

NARRATIVE: CASE EVENT DATE: 20180701
